FAERS Safety Report 6555878-2 (Version None)
Quarter: 2010Q1

REPORT INFORMATION
  Report Type: 
  Country: None (occurrence: None)
  Receive Date: 20100128
  Receipt Date: 20100118
  Transmission Date: 20100710
  Serious: Yes (Hospitalization, Other)
  Sender: FDA-Public Use
  Company Number: GB-JNJFOC-20091105039

PATIENT
  Age: 45 Year
  Sex: Female

DRUGS (4)
  1. CAELYX [Suspect]
     Indication: BREAST CANCER METASTATIC
     Route: 042
  2. DOCETAXEL [Suspect]
     Indication: BREAST CANCER METASTATIC
     Route: 065
  3. ERYTHROMYCIN [Interacting]
     Indication: PROPHYLAXIS
     Route: 065
  4. OMEPRAZOLE [Suspect]
     Indication: DRUG USE FOR UNKNOWN INDICATION
     Route: 065

REACTIONS (11)
  - ABDOMINAL DISTENSION [None]
  - ABDOMINAL PAIN [None]
  - DIARRHOEA [None]
  - DRUG INTERACTION [None]
  - ENTEROCOLITIS [None]
  - FEBRILE NEUTROPENIA [None]
  - HAEMATEMESIS [None]
  - JAUNDICE CHOLESTATIC [None]
  - PSEUDOMEMBRANOUS COLITIS [None]
  - RASH ERYTHEMATOUS [None]
  - VOMITING [None]
